FAERS Safety Report 14902248 (Version 1)
Quarter: 2018Q2

REPORT INFORMATION
  Report Type: Spontaneous
  Country: NO (occurrence: NO)
  Receive Date: 20180516
  Receipt Date: 20180516
  Transmission Date: 20180711
  Serious: Yes (Disabling)
  Sender: FDA-Public Use
  Company Number: NO-ARALEZ PHARMACEUTICALS R+D INC.-2018-ARA-001206

PATIENT
  Age: 25 Year
  Sex: Female

DRUGS (4)
  1. MODIODAL [Suspect]
     Active Substance: MODAFINIL
     Indication: PRODUCT USED FOR UNKNOWN INDICATION
     Dosage: 400 MG PER 24 HOURS
     Route: 048
     Dates: start: 201701
  2. RITALIN [Suspect]
     Active Substance: METHYLPHENIDATE HYDROCHLORIDE
     Indication: HYPERSOMNIA
     Dosage: UNK
     Dates: start: 201708, end: 201710
  3. WELLBUTRIN [Concomitant]
     Active Substance: BUPROPION HYDROCHLORIDE
     Indication: BIPOLAR DISORDER
     Dosage: UNK
  4. METOPROLOL SUCCINATE. [Suspect]
     Active Substance: METOPROLOL SUCCINATE
     Indication: TACHYCARDIA
     Dosage: UNK
     Route: 048
     Dates: start: 201701, end: 201709

REACTIONS (5)
  - Drug effect incomplete [Unknown]
  - Palpitations [Unknown]
  - Tachycardia [Unknown]
  - Headache [Unknown]
  - Fatigue [Unknown]

NARRATIVE: CASE EVENT DATE: 2017
